FAERS Safety Report 6115897-7 (Version None)
Quarter: 2009Q1

REPORT INFORMATION
  Report Type: 
  Country: None (occurrence: None)
  Receive Date: 20090311
  Receipt Date: 20070221
  Transmission Date: 20090719
  Serious: Yes (Hospitalization)
  Sender: FDA-Public Use
  Company Number: 530#6#2007-00020

PATIENT
  Sex: Female
  Weight: 70 kg

DRUGS (6)
  1. NEUPRO [Suspect]
     Indication: PARKINSON'S DISEASE
     Dosage: (2 MG QD TRANSDERMAL)
     Route: 062
     Dates: start: 20070207, end: 20070209
  2. MOTENS [Concomitant]
  3. ENALAPRIL [Concomitant]
  4. PLAVIX [Concomitant]
  5. SIMVASTATIN [Concomitant]
  6. DOXEPIN HCL [Concomitant]

REACTIONS (4)
  - CIRCULATORY COLLAPSE [None]
  - HYPOKALAEMIA [None]
  - NAUSEA [None]
  - SHOCK [None]
